FAERS Safety Report 25979741 (Version 1)
Quarter: 2025Q4

REPORT INFORMATION
  Report Type: Report from Study
  Country: US (occurrence: US)
  Receive Date: 20251030
  Receipt Date: 20251030
  Transmission Date: 20260118
  Serious: Yes (Other)
  Sender: ALEXION PHARMACEUTICALS
  Company Number: US-AstraZeneca-CH-00980544A

PATIENT
  Sex: Female

DRUGS (2)
  1. OSIMERTINIB [Suspect]
     Active Substance: OSIMERTINIB
     Dosage: 80 MILLIGRAM, QD
  2. ELIQUIS [Concomitant]
     Active Substance: APIXABAN
     Route: 065

REACTIONS (5)
  - Thrombosis [Unknown]
  - Nausea [Unknown]
  - Asthenia [Unknown]
  - Diarrhoea [Unknown]
  - Decreased appetite [Unknown]
